FAERS Safety Report 9637096 (Version 1)
Quarter: 2013Q4

REPORT INFORMATION
  Report Type: Spontaneous
  Country: US (occurrence: US)
  Receive Date: 20131022
  Receipt Date: 20131022
  Transmission Date: 20140711
  Serious: Yes (Death)
  Sender: FDA-Public Use
  Company Number: US-BRISTOL-MYERS SQUIBB COMPANY-19548593

PATIENT
  Sex: Male

DRUGS (2)
  1. BYETTA [Suspect]
     Indication: TYPE 2 DIABETES MELLITUS
     Dates: start: 20101008, end: 201107
  2. VICTOZA [Suspect]
     Indication: TYPE 2 DIABETES MELLITUS
     Dates: start: 20101104, end: 201107

REACTIONS (1)
  - Pancreatic carcinoma [Fatal]
